FAERS Safety Report 6913861-9 (Version None)
Quarter: 2010Q3

REPORT INFORMATION
  Report Type: 
  Country: None (occurrence: None)
  Receive Date: 20100809
  Receipt Date: 20100729
  Transmission Date: 20110219
  Serious: Yes (Death)
  Sender: FDA-Public Use
  Company Number: IN-ROCHE-718532

PATIENT
  Age: 28 Year
  Sex: Female

DRUGS (1)
  1. TAMIFLU [Suspect]
     Indication: H1N1 INFLUENZA
     Route: 065

REACTIONS (5)
  - H1N1 INFLUENZA [None]
  - INTRA-UTERINE DEATH [None]
  - MATERNAL CONDITION AFFECTING FOETUS [None]
  - MATERNAL DRUGS AFFECTING FOETUS [None]
  - PNEUMONIA [None]
